FAERS Safety Report 8712233 (Version 6)
Quarter: 2012Q4

REPORT INFORMATION
  Report Type: Report from Study
  Country: DE (occurrence: DE)
  Receive Date: 20120808
  Receipt Date: 20120907
  Transmission Date: 20130627
  Serious: Yes (Hospitalization, Other)
  Sender: FDA-Public Use
  Company Number: DE-AMGEN-DEUCT2012047651

PATIENT
  Age: 79 Year
  Sex: Female

DRUGS (6)
  1. ETANERCEPT [Suspect]
     Indication: RHEUMATOID ARTHRITIS
     Dosage: 25 mg, qwk
     Dates: start: 201006, end: 201108
  2. ETANERCEPT [Suspect]
     Dosage: 50 mg, qwk
     Dates: start: 20110127, end: 20111115
  3. METHOTREXATE SODIUM [Suspect]
     Indication: RHEUMATOID ARTHRITIS
     Dosage: 25 mg, weekly
     Dates: start: 201006, end: 201108
  4. AZULFIDINE [Concomitant]
     Dosage: 1000 mg, 2x/day
     Dates: start: 2000, end: 201201
  5. RESOCHIN [Concomitant]
     Dosage: 250 mg, 1x/day
     Dates: start: 1990, end: 201201
  6. DECORTIN [Concomitant]
     Dosage: UNK

REACTIONS (3)
  - Renal failure [Recovered/Resolved]
  - Spinal disorder [Recovered/Resolved with Sequelae]
  - Wound infection staphylococcal [Recovered/Resolved]
